FAERS Safety Report 9922027 (Version 1)
Quarter: 2014Q1

REPORT INFORMATION
  Report Type: Spontaneous
  Country: US (occurrence: None)
  Receive Date: 20140221
  Receipt Date: 20140221
  Transmission Date: 20141002
  Serious: Yes (Disabling)
  Sender: FDA-Public Use
  Company Number: None

PATIENT
  Age: 50 Year
  Sex: Male
  Weight: 92.99 kg

DRUGS (8)
  1. RISPERIDONE [Suspect]
     Indication: BIPOLAR DISORDER
     Dosage: 3 MG TAB ?1 PILL PER DAY?ONCE A DAY ?BY MOUTH??ABOUT 3 YEARS AGO
     Route: 048
     Dates: end: 20131125
  2. RISPERIDONE [Suspect]
     Indication: SCHIZOPHRENIA
     Dosage: 3 MG TAB ?1 PILL PER DAY?ONCE A DAY ?BY MOUTH??ABOUT 3 YEARS AGO
     Route: 048
     Dates: end: 20131125
  3. HYDROCHLOROTHIAZIDE [Concomitant]
  4. OMEPRAZOLE [Concomitant]
  5. POTASSIUM CHLORIDE [Concomitant]
  6. TRAMADOL VERAPAMIL [Concomitant]
  7. QUETIAPINE [Concomitant]
  8. CITALOPRAM [Concomitant]

REACTIONS (1)
  - Gynaecomastia [None]
